FAERS Safety Report 4520866-4 (Version None)
Quarter: 2004Q4

REPORT INFORMATION
  Report Type: 
  Country: None (occurrence: None)
  Receive Date: 20041206
  Receipt Date: 20041206
  Transmission Date: 20050328
  Serious: No
  Sender: FDA-Public Use
  Company Number: None

PATIENT
  Age: 75 Year
  Sex: Male

DRUGS (3)
  1. NEURONTIN [Suspect]
     Indication: TREMOR
     Dosage: 300 MG BID PO
     Route: 048
     Dates: start: 20040629, end: 20040729
  2. ENALAPRIL [Concomitant]
  3. TRIAMPTERENE/HCTZ [Concomitant]

REACTIONS (5)
  - ABNORMAL BEHAVIOUR [None]
  - ANGER [None]
  - BALANCE DISORDER [None]
  - GAIT DISTURBANCE [None]
  - IMPATIENCE [None]
